FAERS Safety Report 10010217 (Version 2)
Quarter: 2014Q1

REPORT INFORMATION
  Report Type: Spontaneous
  Country: US (occurrence: US)
  Receive Date: 20140313
  Receipt Date: 20140313
  Transmission Date: 20141002
  Serious: Yes (Hospitalization)
  Sender: FDA-Public Use
  Company Number: US-B.I. PHARMACEUTICALS,INC./RIDGEFIELD-2013-BI-17939BP

PATIENT
  Age: 73 Year
  Sex: Male
  Weight: 86.1 kg

DRUGS (22)
  1. PRADAXA [Suspect]
     Indication: ATRIAL FIBRILLATION
     Dosage: 150 MG
     Route: 048
     Dates: start: 20111012, end: 20111112
  2. TYLENOL [Concomitant]
     Indication: PYREXIA
     Route: 048
  3. NITROSTAT [Concomitant]
     Route: 060
  4. MILK OF MAGNESIA [Concomitant]
     Route: 048
  5. MURO [Concomitant]
     Route: 065
  6. DRISOL [Concomitant]
     Dosage: 7142.8571 U
     Route: 048
  7. JANUVIA [Concomitant]
     Dosage: 50 MG
     Route: 048
     Dates: start: 20100311, end: 20120210
  8. RYTHMOL [Concomitant]
     Dosage: 450 MG
     Route: 048
     Dates: start: 20081003, end: 20130619
  9. PAXIL [Concomitant]
     Dosage: 20 MG
     Route: 048
     Dates: start: 20061024, end: 20130824
  10. LOVAZA [Concomitant]
     Dosage: 4 G
     Route: 048
  11. PRINIVIL [Concomitant]
     Dosage: 10 MG
     Route: 048
     Dates: start: 20111013, end: 20121204
  12. IMDUR [Concomitant]
     Dosage: 30 MG
     Route: 048
     Dates: start: 20100802, end: 20130616
  13. DIABETA [Concomitant]
     Dosage: 2.5 MG
     Route: 048
  14. LANOXIN [Concomitant]
     Dosage: 0.125 MG
     Route: 048
     Dates: start: 20081003, end: 20130723
  15. PREDNISONE [Concomitant]
     Dosage: 30 MG
     Route: 048
     Dates: start: 20061006, end: 20130515
  16. NEXIUM [Concomitant]
     Dosage: 20 MG
     Route: 048
     Dates: start: 20081003, end: 20130601
  17. NORVASC [Concomitant]
     Dosage: 5 MG
     Route: 048
  18. TOPROL XL [Concomitant]
     Dosage: 100 MG
     Route: 065
     Dates: start: 20070630, end: 20130824
  19. ASPIRIN [Concomitant]
     Dosage: 81 MG
     Route: 065
  20. LORTAB [Concomitant]
     Indication: PAIN
     Route: 048
  21. BACTRIM DS [Concomitant]
     Route: 048
  22. GLYBURIDE [Concomitant]
     Route: 065
     Dates: start: 20100405, end: 20121120

REACTIONS (4)
  - Rectal haemorrhage [Unknown]
  - Colitis ischaemic [Unknown]
  - Anaemia [Unknown]
  - Coagulopathy [Unknown]
